FAERS Safety Report 8579447-8 (Version None)
Quarter: 2012Q3

REPORT INFORMATION
  Report Type: 
  Country: None (occurrence: None)
  Receive Date: 20120726
  Receipt Date: 20120716
  Transmission Date: 20120928
  Serious: Yes (Hospitalization)
  Sender: FDA-Public Use
  Company Number: EU-2012-10204

PATIENT
  Sex: Female

DRUGS (1)
  1. PLETAL [Suspect]
     Indication: PERIPHERAL ARTERIAL OCCLUSIVE DISEASE
     Dosage: 50 MG MILLIGRAM(S), BID, ORAL 100 MG MILLIGRAM(S), BID, ORAL
     Route: 048
     Dates: start: 20080101

REACTIONS (4)
  - INFARCTION [None]
  - DRUG INTERACTION [None]
  - OVERDOSE [None]
  - ACUTE CORONARY SYNDROME [None]
